FAERS Safety Report 9461442 (Version 1)
Quarter: 2013Q3

REPORT INFORMATION
  Report Type: Spontaneous
  Country: US (occurrence: US)
  Receive Date: 20130816
  Receipt Date: 20130816
  Transmission Date: 20140515
  Serious: No
  Sender: FDA-Public Use
  Company Number: US-PFIZER INC-2013237652

PATIENT
  Age: 46 Year
  Sex: Male

DRUGS (3)
  1. EFFEXOR XR [Suspect]
     Indication: ANXIETY
     Dosage: 37.5 MG, UNK
     Dates: start: 2007
  2. EFFEXOR XR [Suspect]
     Dosage: 75 MG, UNK
  3. EFFEXOR XR [Suspect]
     Dosage: UNK

REACTIONS (4)
  - Rash [Unknown]
  - Neck pain [Unknown]
  - Musculoskeletal pain [Unknown]
  - Paraesthesia [Unknown]
